FAERS Safety Report 8299117-3 (Version None)
Quarter: 2012Q2

REPORT INFORMATION
  Report Type: 
  Country: None (occurrence: None)
  Receive Date: 20120416
  Receipt Date: 20120416
  Transmission Date: 20120825
  Serious: No
  Sender: FDA-Public Use
  Company Number: None

PATIENT
  Age: 56 Year
  Sex: Female

DRUGS (1)
  1. AUGMENTIN '125' [Suspect]
     Dates: start: 20110104, end: 20110113

REACTIONS (7)
  - MYALGIA [None]
  - CHROMATURIA [None]
  - FAECES PALE [None]
  - HEPATIC ENZYME INCREASED [None]
  - ANTINUCLEAR ANTIBODY POSITIVE [None]
  - DYSPEPSIA [None]
  - JAUNDICE [None]
